FAERS Safety Report 9838829 (Version 1)
Quarter: 2013Q4

REPORT INFORMATION
  Report Type: Spontaneous
  Country: US (occurrence: None)
  Receive Date: 20131205
  Receipt Date: 20131205
  Transmission Date: 20140711
  Serious: Yes (Hospitalization)
  Sender: FDA-Public Use
  Company Number: 163-POMAL-13111181

PATIENT
  Age: 72 Year
  Sex: Male
  Weight: 95.4 kg

DRUGS (9)
  1. POMALYST [Suspect]
     Indication: PLASMA CELL MYELOMA
     Route: 048
     Dates: start: 20130927
  2. LASIX (FUROSEMIDE) (TABLETS) [Concomitant]
  3. DEXAMETHASONE (DEXAMETHASONE) (TABLETS) [Concomitant]
  4. SIMVASTATIN (SIMVASTATIN)(TABLETS) [Concomitant]
  5. ACYCLOVIR (ACICLOVIR) (TABLETS) [Concomitant]
  6. METOPROLOL-HCTZ (CO-BETALOC)(TABLETS) [Concomitant]
  7. OMEPRAZOLE (OMEPRAZOLE) [Concomitant]
  8. MAGNESIUM (MAGNESIUM )(TABLETS) [Concomitant]
  9. VITAMIN B6 (PYRIDOXINE HYDROCHLORIDE) [Concomitant]

REACTIONS (1)
  - Pneumonia [None]
